FAERS Safety Report 8770723 (Version 1)
Quarter: 2012Q4

REPORT INFORMATION
  Report Type: 
  Country: US (occurrence: US)
  Receive Date: 20120906
  Receipt Date: 20120906
  Transmission Date: 20130627
  Serious: Yes (Hospitalization)
  Sender: FDA-Public Use
  Company Number: US-BAYER-2012-091439

PATIENT
  Age: 21 Year
  Sex: Female

DRUGS (29)
  1. YASMIN [Suspect]
     Dosage: UNK
  2. LORAZEPAM [Concomitant]
     Dosage: 0.5 mg, UNK
     Route: 048
     Dates: start: 20060214
  3. FAMOTIDINE [Concomitant]
     Dosage: 40 mg, UNK
     Route: 048
     Dates: start: 20060214
  4. CYCLOBENZAPRINE [Concomitant]
     Dosage: 10 mg, UNK
     Route: 048
     Dates: start: 20060320
  5. PREDNISONE [Concomitant]
     Dosage: 20 mg, UNK
     Route: 048
     Dates: start: 20060323
  6. DARVOCET [Concomitant]
     Dosage: 100 UNK, as needed
     Route: 048
  7. IBUPROFEN [Concomitant]
     Dosage: 800 mg, three times daily
     Route: 048
  8. FLEXERIL [Concomitant]
     Dosage: 10 mg, three times daily
     Route: 048
  9. PHENERGAN [Concomitant]
     Indication: NAUSEA
     Dosage: UNK
  10. ZOFRAN [Concomitant]
     Indication: NAUSEA
     Dosage: UNK
  11. TORADOL [Concomitant]
     Indication: MUSCLE SPASMS
     Dosage: UNK
  12. VALIUM [Concomitant]
     Indication: MUSCLE SPASMS
     Dosage: UNK
  13. DILAUDID [Concomitant]
     Dosage: UNK
  14. FENTANYL [Concomitant]
     Dosage: UNK
  15. MS CONTIN [Concomitant]
     Dosage: UNK
  16. ZANAFLEX [Concomitant]
     Dosage: UNK
  17. ZOSYN [Concomitant]
     Dosage: UNK
  18. ALBUTEROL [Concomitant]
     Dosage: UNK
  19. BACLOFEN [Concomitant]
     Dosage: UNK
  20. TIZANIDINE [Concomitant]
     Dosage: UNK
  21. MORPHINE [Concomitant]
     Dosage: UNK
  22. NEURONTIN [Concomitant]
     Dosage: UNK
  23. DIAZEPAM [Concomitant]
     Dosage: UNK
  24. KETOROLAC [Concomitant]
     Dosage: UNK
  25. DOCUSATE SODIUM [Concomitant]
     Dosage: UNK
  26. PROTONIX [Concomitant]
     Dosage: UNK
  27. NYSTATIN [Concomitant]
     Dosage: UNK
  28. LIDOCAIN [Concomitant]
     Dosage: UNK, UNK, UNK
  29. BENADRYL [Concomitant]
     Dosage: UNK

REACTIONS (2)
  - Deep vein thrombosis [None]
  - Pulmonary embolism [None]
